FAERS Safety Report 20778662 (Version 1)
Quarter: 2022Q2

REPORT INFORMATION
  Report Type: Other
  Country: US (occurrence: None)
  Receive Date: 20220503
  Receipt Date: 20220503
  Transmission Date: 20220721
  Serious: Yes (Hospitalization)
  Sender: FDA-Public Use
  Company Number: US-ROCHE-3082122

PATIENT
  Age: 20 Year
  Sex: Male

DRUGS (4)
  1. EVRYSDI [Suspect]
     Active Substance: RISDIPLAM
     Indication: Spinal muscular atrophy
     Dosage: YES
     Route: 048
     Dates: start: 20201021
  2. MOTRIN IB [Concomitant]
     Active Substance: IBUPROFEN
  3. ULTRAM [Concomitant]
     Active Substance: TRAMADOL HYDROCHLORIDE
  4. TAGAMET HB [Concomitant]
     Active Substance: CIMETIDINE

REACTIONS (4)
  - Pharyngitis streptococcal [Unknown]
  - Sepsis [Unknown]
  - Nephrolithiasis [Unknown]
  - Skin bacterial infection [Unknown]

NARRATIVE: CASE EVENT DATE: 20220310
